FAERS Safety Report 8916001 (Version 1)
Quarter: 2012Q4

REPORT INFORMATION
  Report Type: 
  Country: AU (occurrence: AU)
  Receive Date: 20121119
  Receipt Date: 20121119
  Transmission Date: 20130627
  Serious: Yes (Disabling)
  Sender: FDA-Public Use
  Company Number: AU-GLAXOSMITHKLINE-B0838972A

PATIENT
  Age: 55 Year
  Sex: Female
  Weight: 68 kg

DRUGS (2)
  1. LAMICTAL [Suspect]
     Indication: PRODUCT USED FOR UNKNOWN INDICATION
     Dosage: 25MG Twice per day
     Dates: start: 20120724, end: 20120801
  2. SODIUM VALPROATE [Concomitant]
     Indication: PRODUCT USED FOR UNKNOWN INDICATION
     Dosage: 1000MG Per day

REACTIONS (4)
  - Rash [Recovered/Resolved]
  - Rash erythematous [Recovered/Resolved]
  - Rash pruritic [Recovered/Resolved]
  - Onycholysis [Recovered/Resolved]
